FAERS Safety Report 13160043 (Version 2)
Quarter: 2017Q1

REPORT INFORMATION
  Report Type: Spontaneous
  Country: AU (occurrence: AU)
  Receive Date: 20170127
  Receipt Date: 20170330
  Transmission Date: 20170428
  Serious: Yes (Other)
  Sender: FDA-Public Use
  Company Number: AU-PFIZER INC-2017030080

PATIENT
  Age: 65 Year
  Sex: Female

DRUGS (4)
  1. EFFEXOR XR [Suspect]
     Active Substance: VENLAFAXINE HYDROCHLORIDE
     Indication: BIPOLAR DISORDER
     Dosage: 150 MG, UNK
     Dates: start: 2005
  2. VALIUM [Concomitant]
     Active Substance: DIAZEPAM
     Dosage: 2 MG, AS NEEDED
     Dates: end: 201602
  3. EFFEXOR XR [Suspect]
     Active Substance: VENLAFAXINE HYDROCHLORIDE
     Dosage: 75 MG, 1X/DAY
  4. SEROQUEL [Concomitant]
     Active Substance: QUETIAPINE FUMARATE
     Dosage: 12.5 MG, AS NEEDED
     Dates: end: 201602

REACTIONS (6)
  - Ileus paralytic [Not Recovered/Not Resolved]
  - Dysuria [Unknown]
  - Musculoskeletal stiffness [Not Recovered/Not Resolved]
  - Fall [Unknown]
  - Constipation [Not Recovered/Not Resolved]
  - Fine motor skill dysfunction [Unknown]

NARRATIVE: CASE EVENT DATE: 2005
